FAERS Safety Report 6797122-7 (Version None)
Quarter: 2010Q2

REPORT INFORMATION
  Report Type: 
  Country: None (occurrence: None)
  Receive Date: 20100623
  Receipt Date: 20100608
  Transmission Date: 20101027
  Serious: Yes (Other)
  Sender: FDA-Public Use
  Company Number: AUR-APL-2010-01537

PATIENT
  Sex: Male

DRUGS (5)
  1. CITALOPRAM 20MG [Suspect]
     Indication: DEPRESSION
     Dosage: 10MG, QD,
     Dates: start: 20100501, end: 20100601
  2. CITALOPRAM 20MG [Suspect]
     Indication: DEPRESSION
     Dosage: 20MG, QD;
     Dates: start: 20100601, end: 20100608
  3. LAMICTAL [Concomitant]
  4. PROVIGIL [Concomitant]
  5. SUPPLEMENTS [Concomitant]

REACTIONS (7)
  - CONDITION AGGRAVATED [None]
  - DIARRHOEA [None]
  - DIZZINESS [None]
  - ERECTILE DYSFUNCTION [None]
  - FATIGUE [None]
  - GOUT [None]
  - UNEVALUABLE EVENT [None]
